FAERS Safety Report 22759672 (Version 2)
Quarter: 2023Q4

REPORT INFORMATION
  Report Type: Spontaneous
  Country: US (occurrence: US)
  Receive Date: 20230728
  Receipt Date: 20231017
  Transmission Date: 20240109
  Serious: Yes (Other)
  Sender: FDA-Public Use
  Company Number: US-BRISTOL-MYERS SQUIBB COMPANY-2023-105437

PATIENT
  Age: 77 Year
  Sex: Male
  Weight: 91 kg

DRUGS (9)
  1. REVLIMID [Suspect]
     Active Substance: LENALIDOMIDE
     Indication: Plasma cell myeloma
     Route: 048
     Dates: start: 20221004, end: 20230206
  2. REVLIMID [Suspect]
     Active Substance: LENALIDOMIDE
     Route: 048
     Dates: start: 20221006, end: 20230723
  3. REVLIMID [Suspect]
     Active Substance: LENALIDOMIDE
     Dates: start: 20221011
  4. DEXAMETHASONE [Concomitant]
     Active Substance: DEXAMETHASONE
     Indication: Product used for unknown indication
     Dates: start: 20221004
  5. ACETAMINOPHEN\HYDROCODONE [Concomitant]
     Active Substance: ACETAMINOPHEN\HYDROCODONE
     Indication: Product used for unknown indication
     Dosage: 5-325 MG
     Route: 048
     Dates: start: 20221004
  6. MEMANTINE [Concomitant]
     Active Substance: MEMANTINE
     Indication: Product used for unknown indication
     Dosage: 5-325 MG
     Route: 048
     Dates: start: 20221004
  7. NAPROXEN [Concomitant]
     Active Substance: NAPROXEN
     Indication: Product used for unknown indication
     Dosage: 5-325 MG
     Route: 048
     Dates: start: 20221004
  8. ONDANSETRON HYDROCHLORIDE [Concomitant]
     Active Substance: ONDANSETRON HYDROCHLORIDE
     Indication: Product used for unknown indication
     Dosage: 5-325 MG
     Route: 048
     Dates: start: 20221004
  9. AMLODIPINE BESYLATE [Concomitant]
     Active Substance: AMLODIPINE BESYLATE
     Indication: Product used for unknown indication
     Dosage: 5-325 MG
     Route: 048
     Dates: start: 20221004

REACTIONS (5)
  - Neutropenia [Recovered/Resolved]
  - Off label use [Unknown]
  - Dementia [Unknown]
  - Hallucination [Unknown]
  - Decreased interest [Unknown]

NARRATIVE: CASE EVENT DATE: 20230708
